FAERS Safety Report 24565944 (Version 1)
Quarter: 2024Q4

REPORT INFORMATION
  Report Type: Spontaneous
  Country: NL (occurrence: IT)
  Receive Date: 20241030
  Receipt Date: 20241030
  Transmission Date: 20250114
  Serious: Yes (Other)
  Sender: RANBAXY
  Company Number: IT-ROCHE-10000022235

PATIENT
  Age: 79 Year
  Sex: Female

DRUGS (3)
  1. PANTOPRAZOLE [Suspect]
     Active Substance: PANTOPRAZOLE
     Indication: Product used for unknown indication
     Dosage: UNK
     Route: 065
  2. CEFTRIAXONE [Suspect]
     Active Substance: CEFTRIAXONE
     Indication: Product used for unknown indication
     Dosage: UNK
     Route: 065
  3. RIFAXIMIN [Suspect]
     Active Substance: RIFAXIMIN
     Indication: Product used for unknown indication
     Dosage: UNK
     Route: 065

REACTIONS (1)
  - Thrombocytopenia [Unknown]
